FAERS Safety Report 25672085 (Version 2)
Quarter: 2025Q3

REPORT INFORMATION
  Report Type: Spontaneous
  Country: EU (occurrence: EU)
  Receive Date: 20250812
  Receipt Date: 20250927
  Transmission Date: 20251020
  Serious: Yes (Hospitalization)
  Sender: ABBVIE
  Company Number: EU-ABBVIE-6410649

PATIENT
  Age: 48 Year
  Sex: Male

DRUGS (4)
  1. ASENAPINE MALEATE [Suspect]
     Active Substance: ASENAPINE MALEATE
     Indication: Major depression
     Dosage: 1/2 TABLET
     Route: 048
     Dates: start: 20250702, end: 20250702
  2. VENLAFAXINE [Concomitant]
     Active Substance: VENLAFAXINE HYDROCHLORIDE
     Indication: Product used for unknown indication
  3. PREGABALIN [Concomitant]
     Active Substance: PREGABALIN
     Indication: Product used for unknown indication
  4. DELORAZEPAM [Concomitant]
     Active Substance: DELORAZEPAM
     Indication: Product used for unknown indication

REACTIONS (3)
  - Hypotension [Unknown]
  - Fall [Unknown]
  - Somnolence [Unknown]

NARRATIVE: CASE EVENT DATE: 20250702
